FAERS Safety Report 18343211 (Version 1)
Quarter: 2020Q3

REPORT INFORMATION
  Report Type: Spontaneous
  Country: US (occurrence: US)
  Receive Date: 20200928
  Receipt Date: 20200928
  Transmission Date: 20201103
  Serious: Yes (Death)
  Sender: FDA-Public Use
  Company Number: None

PATIENT
  Age: 8 Decade
  Sex: Male

DRUGS (4)
  1. HYDROXYCHLOROQUINE [Suspect]
     Active Substance: HYDROXYCHLOROQUINE
     Indication: COVID-19
     Dates: start: 2020
  2. CEFTRIAXONE. [Suspect]
     Active Substance: CEFTRIAXONE
     Indication: COVID-19
     Dates: start: 2020
  3. LOPINAVIR?RITONAVIR [Suspect]
     Active Substance: LOPINAVIR\RITONAVIR
     Indication: COVID-19
     Dosage: ?          OTHER DOSE:400/100MG;?
     Dates: start: 2020
  4. LEVOFLOXACIN. [Suspect]
     Active Substance: LEVOFLOXACIN
     Indication: COVID-19
     Dates: start: 2020

REACTIONS (11)
  - Pneumonia necrotising [None]
  - Septic shock [None]
  - Atrial fibrillation [None]
  - Respiratory failure [None]
  - Bronchopulmonary aspergillosis [None]
  - Alanine aminotransferase increased [None]
  - Blood bilirubin increased [None]
  - Haemodynamic instability [None]
  - Multiple organ dysfunction syndrome [None]
  - Off label use [None]
  - Hepatic function abnormal [None]
